FAERS Safety Report 23783523 (Version 1)
Quarter: 2024Q2

REPORT INFORMATION
  Report Type: Spontaneous
  Country: US (occurrence: US)
  Receive Date: 20240425
  Receipt Date: 20240425
  Transmission Date: 20240716
  Serious: No
  Sender: FDA-Public Use
  Company Number: US-GSKCCFUS-Case-01986719_AE-110293

PATIENT
  Sex: Female

DRUGS (1)
  1. TRELEGY ELLIPTA [Suspect]
     Active Substance: FLUTICASONE FUROATE\UMECLIDINIUM BROMIDE\VILANTEROL TRIFENATATE
     Indication: Product used for unknown indication
     Dosage: UNK, TREL 200/62.5/25 MCG
     Dates: start: 2023

REACTIONS (4)
  - Dyspnoea [Unknown]
  - Wheezing [Unknown]
  - Condition aggravated [Unknown]
  - Product dose omission issue [Unknown]
